FAERS Safety Report 15546927 (Version 1)
Quarter: 2018Q4

REPORT INFORMATION
  Report Type: Spontaneous
  Country: US (occurrence: US)
  Receive Date: 20181024
  Receipt Date: 20181024
  Transmission Date: 20190205
  Serious: Yes (Disabling)
  Sender: FDA-Public Use
  Company Number: None

PATIENT
  Age: 72 Year
  Sex: Female
  Weight: 83.25 kg

DRUGS (14)
  1. COLACE [Concomitant]
     Active Substance: DOCUSATE SODIUM
  2. CIPROFLOXACN [Suspect]
     Active Substance: CIPROFLOXACIN
     Indication: URINARY TRACT INFECTION
     Dosage: ?          QUANTITY:3 TABLET(S);?
     Route: 048
     Dates: start: 20170320, end: 20170323
  3. VENTOLIN HFA [Concomitant]
     Active Substance: ALBUTEROL SULFATE
  4. XANAX [Concomitant]
     Active Substance: ALPRAZOLAM
  5. CLOETASOL (TEMOVATE) [Concomitant]
  6. ZYRTEC [Concomitant]
     Active Substance: CETIRIZINE HYDROCHLORIDE
  7. TRIAMCINOLONE ACETONIDE (KENALOG) LTION [Concomitant]
  8. BUMETANIDE (BUMEX) [Concomitant]
  9. PRILOSEC [Concomitant]
     Active Substance: OMEPRAZOLE MAGNESIUM
  10. LEVOTHYROXINE. [Concomitant]
     Active Substance: LEVOTHYROXINE
  11. REMERON [Concomitant]
     Active Substance: MIRTAZAPINE
  12. AZELASTINE (ASTEPRO) [Concomitant]
  13. CELEXA [Concomitant]
     Active Substance: CITALOPRAM HYDROBROMIDE
  14. TRAMADOL (ULTRAM) [Concomitant]

REACTIONS (12)
  - Memory impairment [None]
  - Crying [None]
  - Nervousness [None]
  - Gait disturbance [None]
  - Dizziness [None]
  - Delirium [None]
  - Agitation [None]
  - Muscular weakness [None]
  - Tremor [None]
  - Insomnia [None]
  - Hallucination [None]
  - Fear [None]

NARRATIVE: CASE EVENT DATE: 20181023
